FAERS Safety Report 26134034 (Version 1)
Quarter: 2025Q4

REPORT INFORMATION
  Report Type: Spontaneous
  Country: EU (occurrence: EU)
  Receive Date: 20251209
  Receipt Date: 20251209
  Transmission Date: 20260118
  Serious: Yes (Life-Threatening, Hospitalization, Other)
  Sender: RANBAXY
  Company Number: EU-MINISAL02-1055460

PATIENT
  Age: 81 Year
  Sex: Male

DRUGS (4)
  1. OXALIPLATIN [Suspect]
     Active Substance: OXALIPLATIN
     Indication: Adenocarcinoma gastric stage IV
     Dosage: 148 MILLIGRAM, UNK
     Route: 042
     Dates: start: 20250811, end: 20250811
  2. FLUOROURACIL [Suspect]
     Active Substance: FLUOROURACIL
     Indication: Adenocarcinoma gastric stage IV
     Dosage: 700 MILLIGRAM ON DAYS 1 AND 2; 2100 MG IN ELASTOMER FOR 48 HOURS
     Route: 042
     Dates: start: 20250811, end: 20250812
  3. ARIXTRA [Suspect]
     Active Substance: FONDAPARINUX SODIUM
     Indication: Peripheral vein thrombosis
     Dosage: 7.5 MILLIGRAM, UNK
     Route: 058
     Dates: start: 20250725, end: 20250814
  4. OPDIVO [Suspect]
     Active Substance: NIVOLUMAB
     Indication: Adenocarcinoma gastric stage IV
     Dosage: 240 MILLIGRAM EVERY 2 WEEKS
     Route: 042
     Dates: start: 20250811, end: 20250811

REACTIONS (3)
  - Shock haemorrhagic [Recovering/Resolving]
  - Arterial haemorrhage [Recovering/Resolving]
  - Haematoma [Not Recovered/Not Resolved]

NARRATIVE: CASE EVENT DATE: 20250812
